FAERS Safety Report 13616675 (Version 1)
Quarter: 2017Q2

REPORT INFORMATION
  Report Type: Spontaneous
  Country: US (occurrence: US)
  Receive Date: 20170606
  Receipt Date: 20170606
  Transmission Date: 20170830
  Serious: No
  Sender: FDA-Public Use
  Company Number: US-SA-2016SA109213

PATIENT
  Age: 53 Year
  Sex: Female

DRUGS (2)
  1. LANTUS [Suspect]
     Active Substance: INSULIN GLARGINE
     Indication: TYPE 2 DIABETES MELLITUS
     Dosage: PATIENT TAKES DOSE AT NIGHT?DOSE: TITRATED UPTO 100 UNITS
     Route: 065
  2. HUMALOG [Concomitant]
     Active Substance: INSULIN LISPRO
     Dosage: 6 TIMES A DAY

REACTIONS (5)
  - Insomnia [Unknown]
  - Blood glucose increased [Unknown]
  - Confusional state [Unknown]
  - Fatigue [Unknown]
  - Intentional product misuse [Unknown]
